FAERS Safety Report 23447946 (Version 1)
Quarter: 2024Q1

REPORT INFORMATION
  Report Type: Spontaneous
  Country: US (occurrence: US)
  Receive Date: 20240126
  Receipt Date: 20240126
  Transmission Date: 20240410
  Serious: Yes (Other)
  Sender: FDA-Public Use
  Company Number: US-002147023-NVSC2024US017777

PATIENT
  Sex: Male

DRUGS (1)
  1. TASIGNA [Suspect]
     Active Substance: NILOTINIB
     Indication: Chronic myeloid leukaemia
     Dosage: UNK
     Route: 065
     Dates: start: 201306

REACTIONS (16)
  - Carotid artery stenosis [Unknown]
  - Vertebral artery occlusion [Unknown]
  - Cerebral arteriosclerosis [Unknown]
  - Carotid arteriosclerosis [Unknown]
  - Cerebrovascular accident [Unknown]
  - Brain stem stroke [Unknown]
  - Cerebellar stroke [Unknown]
  - Arteriosclerosis [Unknown]
  - Peripheral arterial occlusive disease [Unknown]
  - Coronary artery disease [Unknown]
  - Anxiety [Unknown]
  - Pain [Unknown]
  - Multiple injuries [Unknown]
  - Emotional distress [Unknown]
  - Muscular weakness [Not Recovered/Not Resolved]
  - Hypoaesthesia [Not Recovered/Not Resolved]

NARRATIVE: CASE EVENT DATE: 20220129
